FAERS Safety Report 11947641 (Version 1)
Quarter: 2016Q1

REPORT INFORMATION
  Report Type: Spontaneous
  Country: US (occurrence: US)
  Receive Date: 20160125
  Receipt Date: 20160125
  Transmission Date: 20160526
  Serious: No
  Sender: FDA-Public Use
  Company Number: US-JNJFOC-20151212656

PATIENT
  Age: 20 Year
  Sex: Male
  Weight: 81.65 kg

DRUGS (4)
  1. MAGNESIUM [Concomitant]
     Active Substance: MAGNESIUM
     Indication: HAIR GROWTH ABNORMAL
     Route: 065
  2. MENS ROGAINE EXTRA STRENGTH [Suspect]
     Active Substance: MINOXIDIL
     Route: 061
  3. MENS ROGAINE EXTRA STRENGTH [Suspect]
     Active Substance: MINOXIDIL
     Indication: ALOPECIA
     Route: 061
  4. SAW PALMETTO [Concomitant]
     Active Substance: SAW PALMETTO
     Indication: HAIR GROWTH ABNORMAL
     Route: 065

REACTIONS (3)
  - Drug administered at inappropriate site [Not Recovered/Not Resolved]
  - Product lot number issue [Unknown]
  - Alopecia [Not Recovered/Not Resolved]
